FAERS Safety Report 10551849 (Version 1)
Quarter: 2014Q4

REPORT INFORMATION
  Report Type: Spontaneous
  Country: US (occurrence: None)
  Receive Date: 20141023
  Receipt Date: 20141023
  Transmission Date: 20150529
  Serious: No
  Sender: FDA-Public Use
  Company Number: AP356-01120-SPO-US

PATIENT
  Age: 58 Year
  Sex: Female
  Weight: 109 kg

DRUGS (4)
  1. PAIN MEDICATION ( OTHER ANALGESICS AND ANTIPYRETICS) [Concomitant]
  2. XANAX ( ALPRAZOLAM) [Concomitant]
  3. BELVIQ [Suspect]
     Active Substance: LORCASERIN HYDROCHLORIDE
     Indication: WEIGHT DECREASED
     Dosage: 10 MG, 1 IN 1 D, ORAL
     Route: 048
     Dates: start: 201406, end: 2014
  4. ZOLOFT ( SERTRALINE) [Concomitant]

REACTIONS (1)
  - Fatigue [None]

NARRATIVE: CASE EVENT DATE: 2014
